FAERS Safety Report 22247158 (Version 1)
Quarter: 2023Q2

REPORT INFORMATION
  Report Type: Spontaneous
  Country: ES (occurrence: ES)
  Receive Date: 20230424
  Receipt Date: 20230424
  Transmission Date: 20230722
  Serious: Yes (Other)
  Sender: FDA-Public Use
  Company Number: None

PATIENT
  Age: 30 Year
  Sex: Female

DRUGS (4)
  1. RINVOQ [Suspect]
     Active Substance: UPADACITINIB
     Indication: Spondyloarthropathy
     Dosage: 15 MG/24 H
     Route: 048
     Dates: start: 20221213
  2. SHINGRIX POLVO Y SUSPENSION PARA SUSPENSION INYECTABLE [Concomitant]
     Indication: Herpes zoster immunisation
     Dosage: DOSIS 2
     Route: 030
     Dates: start: 20230322, end: 20230322
  3. SHINGRIX POLVO Y SUSPENSION PARA SUSPENSION INYECTABLE [Concomitant]
     Indication: Herpes zoster immunisation
     Dosage: DOSIS 1
     Route: 030
     Dates: start: 20221221, end: 20221221
  4. PREVENAR 13 SUSPENSION INYECTABLE [Concomitant]
     Indication: Prophylaxis
     Route: 030
     Dates: start: 20230322, end: 20230322

REACTIONS (1)
  - Ophthalmic herpes zoster [Recovering/Resolving]

NARRATIVE: CASE EVENT DATE: 20230410
